FAERS Safety Report 4895487-4 (Version None)
Quarter: 2006Q1

REPORT INFORMATION
  Report Type: 
  Country: None (occurrence: None)
  Receive Date: 20060130
  Receipt Date: 20060120
  Transmission Date: 20060701
  Serious: Yes (Hospitalization)
  Sender: FDA-Public Use
  Company Number: US-JNJFOC-20051101921

PATIENT
  Sex: Female

DRUGS (21)
  1. REMICADE [Suspect]
     Route: 042
  2. GLYBURIDE [Concomitant]
  3. ZOLOFT [Concomitant]
     Route: 048
  4. FOLATE [Concomitant]
  5. LASIX [Concomitant]
     Route: 048
  6. MULTI-VITAMIN [Concomitant]
  7. MULTI-VITAMIN [Concomitant]
  8. MULTI-VITAMIN [Concomitant]
  9. MULTI-VITAMIN [Concomitant]
  10. MULTI-VITAMIN [Concomitant]
  11. MULTI-VITAMIN [Concomitant]
  12. MULTI-VITAMIN [Concomitant]
  13. MULTI-VITAMIN [Concomitant]
  14. CALCIUM AND VITAMIN D [Concomitant]
  15. CALCIUM AND VITAMIN D [Concomitant]
  16. CALCIUM AND VITAMIN D [Concomitant]
  17. CALCIUM AND VITAMIN D [Concomitant]
  18. CALCIUM AND VITAMIN D [Concomitant]
  19. MAGNESIUM [Concomitant]
  20. DIGOXIN [Concomitant]
     Route: 048
  21. CARDIZEM CD [Concomitant]
     Route: 048

REACTIONS (4)
  - ATRIAL FIBRILLATION [None]
  - BRADYCARDIA [None]
  - EMPYEMA [None]
  - PNEUMONIA [None]
